FAERS Safety Report 5295440-5 (Version None)
Quarter: 2007Q2

REPORT INFORMATION
  Report Type: 
  Country: None (occurrence: None)
  Receive Date: 20070412
  Receipt Date: 20070406
  Transmission Date: 20071010
  Serious: Yes (Hospitalization, Other)
  Sender: FDA-Public Use
  Company Number: US-MERCK-0704USA01293

PATIENT

DRUGS (2)
  1. JANUVIA [Suspect]
     Indication: DIABETES MELLITUS NON-INSULIN-DEPENDENT
     Route: 048
  2. INSULIN [Concomitant]
     Route: 065

REACTIONS (1)
  - HYPOGLYCAEMIA [None]
